FAERS Safety Report 11700099 (Version 1)
Quarter: 2015Q4

REPORT INFORMATION
  Report Type: Spontaneous
  Country: US (occurrence: None)
  Receive Date: 20151104
  Receipt Date: 20151104
  Transmission Date: 20160304
  Serious: Yes (Other)
  Sender: FDA-Public Use
  Company Number: None

PATIENT
  Age: 56 Year
  Sex: Female
  Weight: 77.11 kg

DRUGS (7)
  1. DEXILANT [Suspect]
     Active Substance: DEXLANSOPRAZOLE
     Indication: ULCER
     Dosage: ONE PILL
     Route: 048
     Dates: start: 20150701, end: 20150731
  2. ESTROGEN [Concomitant]
     Active Substance: ESTRONE\SUS SCROFA OVARY
  3. PROGESTATONE [Concomitant]
  4. ATIVAN [Concomitant]
     Active Substance: LORAZEPAM
  5. PORK THYROID [Concomitant]
  6. DILTIAZEM [Concomitant]
     Active Substance: DILTIAZEM
  7. BENICAR [Concomitant]
     Active Substance: OLMESARTAN MEDOXOMIL

REACTIONS (11)
  - Myalgia [None]
  - Presyncope [None]
  - Blood pressure increased [None]
  - Abasia [None]
  - Heart rate increased [None]
  - Depression [None]
  - Dizziness [None]
  - Throat tightness [None]
  - Chest pain [None]
  - Dyspnoea [None]
  - Arthralgia [None]

NARRATIVE: CASE EVENT DATE: 20151103
